FAERS Safety Report 9424746 (Version 2)
Quarter: 2013Q3

REPORT INFORMATION
  Report Type: Spontaneous
  Country: PT (occurrence: PT)
  Receive Date: 20130725
  Receipt Date: 20130904
  Transmission Date: 20140515
  Serious: Yes (Death, Other)
  Sender: FDA-Public Use
  Company Number: DSM-2013-00686

PATIENT
  Age: 62 Year
  Sex: Male

DRUGS (4)
  1. ZOLNOR [Suspect]
     Indication: PRODUCT USED FOR UNKNOWN INDICATION
     Route: 048
     Dates: start: 201206, end: 20130624
  2. ACETYLSALICYLIC ACID [Concomitant]
  3. SIMVASTATINE (SIMVASTATIN) [Concomitant]
  4. SPIRONOLACTONE [Concomitant]

REACTIONS (5)
  - Hepatocellular carcinoma [None]
  - Alpha 1 foetoprotein increased [None]
  - Blood bilirubin increased [None]
  - Blood creatinine increased [None]
  - Neoplasm malignant [None]
